FAERS Safety Report 8328766-9 (Version None)
Quarter: 2012Q2

REPORT INFORMATION
  Report Type: 
  Country: None (occurrence: None)
  Receive Date: 20120430
  Receipt Date: 20120414
  Transmission Date: 20120825
  Serious: Yes (Hospitalization)
  Sender: FDA-Public Use
  Company Number: 2012AP001037

PATIENT
  Age: 69 Year
  Sex: Male

DRUGS (6)
  1. ZOLPIDEM TARTRATE [Suspect]
     Indication: INSOMNIA
  2. ZOLPIDEM TARTRATE [Suspect]
     Indication: PAIN
  3. NAPROXEN [Concomitant]
  4. CHLORPROMAZINE [Concomitant]
  5. DULOXETINE HYDROCHLORIDE [Concomitant]
  6. HALOPERIDOL DECANOATE [Concomitant]

REACTIONS (14)
  - OVERDOSE [None]
  - LOOSE ASSOCIATIONS [None]
  - DELIRIUM [None]
  - ABNORMAL BEHAVIOUR [None]
  - HALLUCINATION [None]
  - PSYCHOTIC DISORDER [None]
  - INTENTIONAL SELF-INJURY [None]
  - DRUG ABUSE [None]
  - FLAT AFFECT [None]
  - TOXICITY TO VARIOUS AGENTS [None]
  - HOSTILITY [None]
  - PSYCHOPATHIC PERSONALITY [None]
  - ANTISOCIAL PERSONALITY DISORDER [None]
  - INCOHERENT [None]
